FAERS Safety Report 5444780-5 (Version None)
Quarter: 2007Q3

REPORT INFORMATION
  Report Type: 
  Country: None (occurrence: None)
  Receive Date: 20070906
  Receipt Date: 20070312
  Transmission Date: 20080115
  Serious: No
  Sender: FDA-Public Use
  Company Number: A0642862A

PATIENT
  Age: 68 Year
  Sex: Female

DRUGS (7)
  1. REQUIP [Suspect]
     Indication: RESTLESS LEGS SYNDROME
     Dosage: 5MG PER DAY
     Route: 048
     Dates: start: 20070305
  2. REMERON [Concomitant]
  3. ZYPREXA [Concomitant]
  4. CLONAZEPAM [Concomitant]
  5. LUVOX [Concomitant]
  6. BUSPIRONE HCL [Concomitant]
  7. INDERAL [Concomitant]

REACTIONS (3)
  - ERUCTATION [None]
  - FLATULENCE [None]
  - NAUSEA [None]
